FAERS Safety Report 5109254-X (Version None)
Quarter: 2006Q3

REPORT INFORMATION
  Report Type: 
  Country: None (occurrence: None)
  Receive Date: 20060918
  Receipt Date: 20060911
  Transmission Date: 20061208
  Serious: Yes (Hospitalization)
  Sender: FDA-Public Use
  Company Number: 2006109306

PATIENT
  Age: 17 Year
  Sex: Female
  Weight: 54.4316 kg

DRUGS (1)
  1. DRAMAMINE [Suspect]
     Indication: EUPHORIC MOOD
     Dosage: ^A LOT^, ORAL
     Route: 048
     Dates: start: 20040101

REACTIONS (1)
  - DRUG DEPENDENCE [None]
